FAERS Safety Report 7866611-6 (Version None)
Quarter: 2011Q4

REPORT INFORMATION
  Report Type: 
  Country: None (occurrence: None)
  Receive Date: 20111028
  Receipt Date: 20110713
  Transmission Date: 20120403
  Serious: No
  Sender: FDA-Public Use
  Company Number: US-GLAXOSMITHKLINE-A0936698A

PATIENT
  Age: 61 Year
  Sex: Female

DRUGS (9)
  1. VERAPAMIL [Concomitant]
  2. LOSARTAN POTASSIUM [Concomitant]
  3. ADVAIR DISKUS 100/50 [Suspect]
     Indication: BRONCHITIS
     Dosage: 1PUFF TWICE PER DAY
     Route: 055
     Dates: start: 20110520, end: 20110522
  4. VITAMIN B COMPLEX CAP [Concomitant]
  5. ACIPHEX [Concomitant]
  6. ASCORBIC ACID [Concomitant]
  7. SYNTHROID [Concomitant]
  8. CALCIUM CARBONATE [Concomitant]
  9. MULTI-VITAMIN [Concomitant]

REACTIONS (1)
  - CHEST PAIN [None]
